FAERS Safety Report 8539795-4 (Version None)
Quarter: 2012Q3

REPORT INFORMATION
  Report Type: 
  Country: None (occurrence: None)
  Receive Date: 20120726
  Receipt Date: 20120514
  Transmission Date: 20120928
  Serious: No
  Sender: FDA-Public Use
  Company Number: US-MYLANLABS-2012S1008089

PATIENT
  Age: 52 Year
  Sex: Female

DRUGS (2)
  1. PRISTIQ [Concomitant]
     Route: 048
  2. BUPROPION HYDROCHLORIDE [Suspect]
     Indication: DEPRESSION
     Route: 048
     Dates: start: 20120404, end: 20120416

REACTIONS (1)
  - HEADACHE [None]
